FAERS Safety Report 20875946 (Version 2)
Quarter: 2022Q2

REPORT INFORMATION
  Report Type: Other
  Country: CZ (occurrence: None)
  Receive Date: 20220526
  Receipt Date: 20220531
  Transmission Date: 20220721
  Serious: Yes (Life-Threatening)
  Sender: FDA-Public Use
  Company Number: CZ-ROCHE-3104612

PATIENT
  Age: 60 Year
  Sex: Male

DRUGS (1)
  1. RITUXIMAB [Suspect]
     Active Substance: RITUXIMAB
     Indication: Haemophilia
     Dosage: 4 DOSES AT WEEKLY INTERVALS
     Route: 065

REACTIONS (4)
  - Off label use [Unknown]
  - Melaena [Unknown]
  - Haemorrhage [Unknown]
  - Cardiovascular disorder [Unknown]
